FAERS Safety Report 5381224-6 (Version None)
Quarter: 2007Q3

REPORT INFORMATION
  Report Type: 
  Country: None (occurrence: None)
  Receive Date: 20070706
  Receipt Date: 20070626
  Transmission Date: 20080115
  Serious: Yes (Other)
  Sender: FDA-Public Use
  Company Number: FR-PFIZER INC-2007053565

PATIENT
  Age: 15 Year
  Sex: Male

DRUGS (1)
  1. LYRICA [Suspect]

REACTIONS (3)
  - DEPRESSION [None]
  - EUPHORIC MOOD [None]
  - MOOD ALTERED [None]
